FAERS Safety Report 5679839-0 (Version None)
Quarter: 2008Q1

REPORT INFORMATION
  Report Type: 
  Country: None (occurrence: None)
  Receive Date: 20080324
  Receipt Date: 20080312
  Transmission Date: 20080703
  Serious: Yes (Life-Threatening, Hospitalization, Disabling)
  Sender: FDA-Public Use
  Company Number: CHNY2008DE01279

PATIENT
  Age: 66 Year
  Sex: Male

DRUGS (1)
  1. ACETYLSALICYLIC ACID (NCH)(ACETYLSALICYLIC ACID) UNKNOWN [Suspect]

REACTIONS (4)
  - CEREBELLAR HAEMORRHAGE [None]
  - CEREBELLAR SYNDROME [None]
  - OEDEMA [None]
  - SOMNOLENCE [None]
